FAERS Safety Report 9443562 (Version 2)
Quarter: 2013Q3

REPORT INFORMATION
  Report Type: Spontaneous
  Country: US (occurrence: US)
  Receive Date: 20130806
  Receipt Date: 20130821
  Transmission Date: 20140515
  Serious: Yes (Other)
  Sender: FDA-Public Use
  Company Number: US-PFIZER INC-2013223902

PATIENT
  Sex: Male

DRUGS (2)
  1. DIFLUCAN [Suspect]
     Indication: FUNGAL INFECTION
     Dosage: 800 MG, 1X/DAY
     Dates: start: 1999
  2. ATRIPLA [Interacting]
     Dosage: UNK
     Dates: start: 2006

REACTIONS (2)
  - Drug interaction [Unknown]
  - Liver function test abnormal [Unknown]
